FAERS Safety Report 5610875-6 (Version None)
Quarter: 2008Q1

REPORT INFORMATION
  Report Type: 
  Country: None (occurrence: None)
  Receive Date: 20080201
  Receipt Date: 20080123
  Transmission Date: 20080703
  Serious: Yes (Other)
  Sender: FDA-Public Use
  Company Number: GB-WYE-H02307308

PATIENT
  Age: 23 Year
  Sex: Male

DRUGS (10)
  1. TIGECYCLINE [Suspect]
     Indication: ABDOMINAL INJURY
     Dosage: UNKNOWN
     Route: 065
  2. TIGECYCLINE [Suspect]
     Indication: PNEUMONIA
  3. VANCOMYCIN [Concomitant]
     Indication: ABDOMINAL INJURY
  4. VANCOMYCIN [Concomitant]
     Indication: PNEUMONIA
  5. PIPERACILLIN AND TAZOBACTAM [Suspect]
     Indication: ABDOMINAL INJURY
  6. PIPERACILLIN AND TAZOBACTAM [Suspect]
     Indication: PNEUMONIA
  7. GENTAMICIN SULFATE [Suspect]
     Indication: ABDOMINAL INJURY
  8. GENTAMICIN SULFATE [Suspect]
     Indication: PNEUMONIA
  9. CEFAZOLIN [Suspect]
     Indication: ABDOMINAL INJURY
  10. CEFAZOLIN [Suspect]
     Indication: PNEUMONIA

REACTIONS (1)
  - CLOSTRIDIAL INFECTION [None]
